FAERS Safety Report 6107123-X (Version None)
Quarter: 2009Q1

REPORT INFORMATION
  Report Type: 
  Country: None (occurrence: None)
  Receive Date: 20090309
  Receipt Date: 20090223
  Transmission Date: 20090719
  Serious: Yes (Hospitalization)
  Sender: FDA-Public Use
  Company Number: PHHY2009CO06761

PATIENT
  Age: 30 Year
  Sex: Female

DRUGS (8)
  1. SYNTOCINON [Suspect]
     Indication: INDUCED LABOUR
     Dosage: 20 UI PER CONTINUOUS INFUSION
     Dates: start: 20081014, end: 20081014
  2. SYNTOCINON [Suspect]
     Dosage: 20 UI PER CONTINUOUS INFUSION AND 5 UL IM
  3. METHERGINE [Concomitant]
     Dosage: 0.2 MG
     Route: 030
  4. MISOPROSTOL [Concomitant]
     Dosage: 800 MCG
  5. CEFALOZIN [Concomitant]
  6. MORPHINE [Concomitant]
  7. FENTANYL [Concomitant]
  8. BUPIVACAINE [Concomitant]

REACTIONS (4)
  - DRUG EXPOSURE DURING PREGNANCY [None]
  - HYSTERECTOMY [None]
  - POSTPARTUM HAEMORRHAGE [None]
  - UTERINE ATONY [None]
